FAERS Safety Report 5251395-0 (Version None)
Quarter: 2007Q1

REPORT INFORMATION
  Report Type: 
  Country: None (occurrence: None)
  Receive Date: 20070228
  Receipt Date: 20060504
  Transmission Date: 20070707
  Serious: No
  Sender: FDA-Public Use
  Company Number: US-GLAXOSMITHKLINE-A0604402A

PATIENT
  Age: 35 Year
  Sex: Male

DRUGS (4)
  1. LAMICTAL [Suspect]
     Indication: BIPOLAR DISORDER
     Dosage: 300MG PER DAY
     Route: 048
     Dates: end: 20060101
  2. CAMPRAL [Suspect]
     Indication: ALCOHOL USE
     Route: 065
  3. RITALIN [Concomitant]
  4. ANTABUSE [Concomitant]

REACTIONS (1)
  - RASH GENERALISED [None]
